FAERS Safety Report 12379245 (Version 1)
Quarter: 2016Q2

REPORT INFORMATION
  Report Type: Spontaneous
  Country: GB (occurrence: GB)
  Receive Date: 20160517
  Receipt Date: 20160517
  Transmission Date: 20160815
  Serious: Yes (Disabling, Other)
  Sender: FDA-Public Use
  Company Number: GB-JNJFOC-20160511906

PATIENT
  Age: 39 Year
  Sex: Female

DRUGS (1)
  1. TOPIRAMATE. [Suspect]
     Active Substance: TOPIRAMATE
     Indication: SEIZURE
     Route: 048
     Dates: start: 20150612, end: 20150620

REACTIONS (4)
  - Ciliary muscle spasm [Recovering/Resolving]
  - Intraocular pressure increased [Recovered/Resolved]
  - Visual acuity reduced [Recovering/Resolving]
  - Corneal oedema [Unknown]

NARRATIVE: CASE EVENT DATE: 20150620
